FAERS Safety Report 11269620 (Version 2)
Quarter: 2015Q3

REPORT INFORMATION
  Report Type: Spontaneous
  Country: US (occurrence: US)
  Receive Date: 20150714
  Receipt Date: 20150714
  Transmission Date: 20151125
  Serious: Yes (Life-Threatening, Other)
  Sender: FDA-Public Use
  Company Number: US-ACTAVIS-2015-14363

PATIENT
  Age: 65 Year
  Sex: Female

DRUGS (3)
  1. VALACYCLOVIR HYDROCHLORIDE (WATSON LABORATORIES) [Suspect]
     Active Substance: VALACYCLOVIR HYDROCHLORIDE
     Indication: HERPES ZOSTER CUTANEOUS DISSEMINATED
     Route: 065
  2. ACYCLOVIR (AMALLC) [Suspect]
     Active Substance: ACYCLOVIR
     Indication: HERPES ZOSTER CUTANEOUS DISSEMINATED
     Route: 042
  3. PREDNISONE (WATSON LABORATORIES) [Suspect]
     Active Substance: PREDNISONE
     Indication: HERPES ZOSTER CUTANEOUS DISSEMINATED
     Dosage: UNKNOWN
     Route: 065

REACTIONS (1)
  - Neurotoxicity [Unknown]
